FAERS Safety Report 5482055-9 (Version None)
Quarter: 2007Q4

REPORT INFORMATION
  Report Type: 
  Country: None (occurrence: None)
  Receive Date: 20071005
  Receipt Date: 20070920
  Transmission Date: 20080405
  Serious: Yes (Other)
  Sender: FDA-Public Use
  Company Number: DE-1164186

PATIENT
  Sex: Male

DRUGS (1)
  1. MAXITROL [Suspect]
     Indication: RETINAL DETACHMENT
     Dosage: 5XD, TID X3 WEEKS OPHTHALMIC
     Route: 047

REACTIONS (3)
  - EYELID PTOSIS [None]
  - LENTICULAR OPACITIES [None]
  - MYDRIASIS [None]
